FAERS Safety Report 15255470 (Version 2)
Quarter: 2025Q4

REPORT INFORMATION
  Report Type: Report from Study
  Country: JP (occurrence: JP)
  Receive Date: 20180808
  Receipt Date: 20251126
  Transmission Date: 20260119
  Serious: Yes (Other)
  Sender: JOHNSON AND JOHNSON
  Company Number: JP-JNJFOC-20180805922

PATIENT
  Age: 39 Year
  Sex: Male
  Weight: 85 kg

DRUGS (2)
  1. YONDELIS [Suspect]
     Active Substance: TRABECTEDIN
     Indication: Myxoid liposarcoma
     Dosage: 2.4 MG/BODY; EVERY 3 WEEKS, A 24-HOUR INFUSION CYCLE 1 TO CYCLE 8; C1: 12-AUG-2016, C2: 02-SEP-2016,
     Route: 042
     Dates: start: 20160812, end: 20170210
  2. DEXAMETHASONE [Concomitant]
     Active Substance: DEXAMETHASONE
     Indication: Product used for unknown indication
     Route: 065
     Dates: start: 20160812

REACTIONS (5)
  - Dermatitis bullous [Not Recovered/Not Resolved]
  - Alanine aminotransferase increased [Recovered/Resolved]
  - Hyperuricaemia [Not Recovered/Not Resolved]
  - Neutrophil count decreased [Recovered/Resolved]
  - Herpes zoster [Unknown]

NARRATIVE: CASE EVENT DATE: 20160815
